FAERS Safety Report 9912295 (Version 1)
Quarter: 2014Q1

REPORT INFORMATION
  Report Type: Spontaneous
  Country: US (occurrence: US)
  Receive Date: 20140220
  Receipt Date: 20140220
  Transmission Date: 20141002
  Serious: Yes (Other)
  Sender: FDA-Public Use
  Company Number: US-BIOGENIDEC-2014BI014869

PATIENT
  Age: 45 Year
  Sex: Female

DRUGS (1)
  1. AVONEX [Suspect]
     Indication: MULTIPLE SCLEROSIS
     Route: 030
     Dates: start: 20081210

REACTIONS (4)
  - Convulsion [Recovered/Resolved]
  - Dysarthria [Not Recovered/Not Resolved]
  - Dyskinesia [Recovered/Resolved]
  - Multiple sclerosis relapse [Not Recovered/Not Resolved]
